FAERS Safety Report 6416115-2 (Version None)
Quarter: 2009Q4

REPORT INFORMATION
  Report Type: 
  Country: None (occurrence: None)
  Receive Date: 20091027
  Receipt Date: 20091019
  Transmission Date: 20100525
  Serious: Yes (Hospitalization, Other)
  Sender: FDA-Public Use
  Company Number: US-MERCK-0908USA02517

PATIENT
  Age: 76 Year
  Sex: Female
  Weight: 59 kg

DRUGS (3)
  1. FOSAMAX [Suspect]
     Indication: OSTEOPOROSIS
     Route: 048
     Dates: start: 20000101, end: 20090101
  2. SYNTHROID [Concomitant]
     Indication: THYROID DISORDER
     Route: 065
     Dates: start: 19900101
  3. NORVASC [Concomitant]
     Indication: RAYNAUD'S PHENOMENON
     Route: 065
     Dates: start: 19900101

REACTIONS (25)
  - ANGINA PECTORIS [None]
  - ANXIETY [None]
  - ARTHROPATHY [None]
  - BLADDER DISORDER [None]
  - BONE DISORDER [None]
  - CHOKING [None]
  - CORONARY ARTERY DISEASE [None]
  - DEEP VEIN THROMBOSIS [None]
  - DEPRESSION [None]
  - DYSPHAGIA [None]
  - EXOSTOSIS [None]
  - FIBROMYALGIA [None]
  - FISTULA DISCHARGE [None]
  - GASTRIC DISORDER [None]
  - HYPERSENSITIVITY [None]
  - HYPERTENSION [None]
  - HYPOAESTHESIA ORAL [None]
  - JAW DISORDER [None]
  - JOINT RANGE OF MOTION DECREASED [None]
  - MASTICATION DISORDER [None]
  - MUSCLE STRAIN [None]
  - OEDEMA [None]
  - OSTEONECROSIS [None]
  - PARAESTHESIA [None]
  - SJOGREN'S SYNDROME [None]
